FAERS Safety Report 5508250-8 (Version None)
Quarter: 2007Q4

REPORT INFORMATION
  Report Type: 
  Country: None (occurrence: None)
  Receive Date: 20071106
  Receipt Date: 20070322
  Transmission Date: 20080405
  Serious: No
  Sender: FDA-Public Use
  Company Number: A0644294A

PATIENT
  Age: 21 Year
  Sex: Female

DRUGS (3)
  1. AMOXIL [Suspect]
     Indication: LYME DISEASE
     Dosage: 250MG THREE TIMES PER DAY
     Route: 048
     Dates: start: 19941116, end: 19941130
  2. ADVIL [Concomitant]
  3. TYLENOL (CAPLET) [Concomitant]

REACTIONS (4)
  - ARTHRALGIA [None]
  - BODY HEIGHT [None]
  - MUSCULOSKELETAL DISCOMFORT [None]
  - OFF LABEL USE [None]
